FAERS Safety Report 6840437-4 (Version None)
Quarter: 2010Q3

REPORT INFORMATION
  Report Type: 
  Country: None (occurrence: None)
  Receive Date: 20100714
  Receipt Date: 20100712
  Transmission Date: 20110219
  Serious: Yes (Other)
  Sender: FDA-Public Use
  Company Number: US-BRISTOL-MYERS SQUIBB COMPANY-15188360

PATIENT
  Sex: Male

DRUGS (1)
  1. KENALOG-10 [Suspect]
     Indication: NASAL OPERATION
     Dates: start: 20081101

REACTIONS (1)
  - BLINDNESS UNILATERAL [None]
